FAERS Safety Report 4374456-7 (Version None)
Quarter: 2004Q2

REPORT INFORMATION
  Report Type: 
  Country: None (occurrence: None)
  Receive Date: 20040602
  Receipt Date: 20040308
  Transmission Date: 20050107
  Serious: No
  Sender: FDA-Public Use
  Company Number: 200414918BWH

PATIENT
  Age: 55 Year
  Sex: Male

DRUGS (7)
  1. LEVITRA [Suspect]
     Indication: ERECTILE DYSFUNCTION
     Dosage: 10 MG OW, ORAL
     Route: 048
     Dates: start: 20040201
  2. LEVITRA [Suspect]
     Indication: ERECTILE DYSFUNCTION
     Dosage: 10 MG OW, ORAL
     Route: 048
     Dates: start: 20040307
  3. PREVACID [Concomitant]
  4. ZOLOFT [Concomitant]
  5. LISINOPRIL [Concomitant]
  6. LIPITOR [Concomitant]
  7. VIAGRA [Concomitant]

REACTIONS (3)
  - FLUSHING [None]
  - HEADACHE [None]
  - NASAL CONGESTION [None]
